FAERS Safety Report 21409987 (Version 1)
Quarter: 2022Q4

REPORT INFORMATION
  Report Type: Spontaneous
  Country: AT (occurrence: AT)
  Receive Date: 20221005
  Receipt Date: 20221005
  Transmission Date: 20230112
  Serious: Yes (Life-Threatening, Hospitalization, Other)
  Sender: FDA-Public Use
  Company Number: AT-drreddys-LIT/AST/22/0155185

PATIENT
  Age: 34 Year
  Sex: Female

DRUGS (12)
  1. LANREOTIDE ACETATE [Suspect]
     Active Substance: LANREOTIDE ACETATE
     Indication: Phaeochromocytoma
     Dosage: 2ND CYCLE (DOSE NOT REPORTED)
     Route: 065
  2. LANREOTIDE ACETATE [Suspect]
     Active Substance: LANREOTIDE ACETATE
     Indication: Off label use
     Dosage: 1ST CYCLE (NOT REPORTED)
     Route: 065
  3. DACARBAZINE [Suspect]
     Active Substance: DACARBAZINE
     Indication: Phaeochromocytoma
     Dosage: 1ST CYCLE
     Route: 065
  4. DACARBAZINE [Suspect]
     Active Substance: DACARBAZINE
     Dosage: 2ND CYCLE
     Route: 065
  5. CYCLOPHOSPHAMIDE [Suspect]
     Active Substance: CYCLOPHOSPHAMIDE
     Indication: Phaeochromocytoma malignant
     Dosage: 2ND CYCLE
     Route: 065
  6. CYCLOPHOSPHAMIDE [Suspect]
     Active Substance: CYCLOPHOSPHAMIDE
     Dosage: 1ST CYCLE
  7. VINCRISTINE [Suspect]
     Active Substance: VINCRISTINE
     Indication: Phaeochromocytoma
     Dosage: 2ND CYCLE
     Route: 065
  8. VINCRISTINE [Suspect]
     Active Substance: VINCRISTINE
     Dosage: 1ST CYCLE
     Route: 065
  9. DOXAZOSIN [Concomitant]
     Active Substance: DOXAZOSIN MESYLATE
     Indication: Heart rate abnormal
  10. DOXAZOSIN [Concomitant]
     Active Substance: DOXAZOSIN MESYLATE
     Indication: Blood pressure abnormal
  11. NEBIVOLOL [Concomitant]
     Active Substance: NEBIVOLOL
     Indication: Blood pressure abnormal
  12. NEBIVOLOL [Concomitant]
     Active Substance: NEBIVOLOL
     Indication: Heart rate abnormal

REACTIONS (4)
  - Exophthalmos [Unknown]
  - Infection [Unknown]
  - Drug ineffective for unapproved indication [Unknown]
  - Off label use [Unknown]
